FAERS Safety Report 9723691 (Version 1)
Quarter: 2013Q4

REPORT INFORMATION
  Report Type: Spontaneous
  Country: IT (occurrence: IT)
  Receive Date: 20131202
  Receipt Date: 20131202
  Transmission Date: 20140711
  Serious: Yes (Hospitalization)
  Sender: FDA-Public Use
  Company Number: IT-GLAXOSMITHKLINE-B0949023A

PATIENT
  Age: 62 Year
  Sex: Male

DRUGS (1)
  1. ARIXTRA [Suspect]
     Indication: DEEP VEIN THROMBOSIS
     Route: 058

REACTIONS (5)
  - Hearing impaired [Unknown]
  - Tinnitus [Unknown]
  - Vertigo [Unknown]
  - Visual acuity reduced [Unknown]
  - Balance disorder [Unknown]
